FAERS Safety Report 9557634 (Version 1)
Quarter: 2013Q3

REPORT INFORMATION
  Report Type: Spontaneous
  Country: US (occurrence: None)
  Receive Date: 20130923
  Receipt Date: 20130923
  Transmission Date: 20140515
  Serious: Yes (Other)
  Sender: FDA-Public Use
  Company Number: KAD201309-001193

PATIENT
  Age: 47 Year
  Sex: Male

DRUGS (5)
  1. RIBAVIRIN [Suspect]
     Indication: HEPATITIS C
     Route: 048
     Dates: start: 20121130
  2. PEGINTERFERON ALFA-2B (PEGINTERFERON ALFA-2B) [Suspect]
     Indication: HEPATITIS C
     Dates: start: 20121130
  3. INCIVO [Suspect]
     Indication: HEPATITIS C
     Dosage: TABLET, 750 MG, THRICE DAILY, ORAL
     Route: 048
     Dates: start: 20121130
  4. OMEPRAZOLE (OMEPRAZOLE)GABAPENTIN (GABAPENTIN) [Concomitant]
  5. OMEPRAZOLE (OMEPRAZOLE) [Concomitant]

REACTIONS (3)
  - Abdominal pain [None]
  - Headache [None]
  - Hepatic pain [None]
